FAERS Safety Report 6656312-4 (Version None)
Quarter: 2010Q1

REPORT INFORMATION
  Report Type: 
  Country: None (occurrence: None)
  Receive Date: 20100329
  Receipt Date: 20100319
  Transmission Date: 20100710
  Serious: Yes (Other)
  Sender: FDA-Public Use
  Company Number: GXKR2010TR03312

PATIENT
  Age: 19 Month
  Sex: Female

DRUGS (1)
  1. ACETYLSALICYLIC ACID SRT [Suspect]
     Indication: PYREXIA
     Dosage: TWO PILLS
     Route: 065

REACTIONS (5)
  - EYELID OEDEMA [None]
  - LEUKOCYTOCLASTIC VASCULITIS [None]
  - PYREXIA [None]
  - RASH ERYTHEMATOUS [None]
  - SKIN DISCOLOURATION [None]
